FAERS Safety Report 8042502-5 (Version None)
Quarter: 2012Q1

REPORT INFORMATION
  Report Type: 
  Country: None (occurrence: None)
  Receive Date: 20120112
  Receipt Date: 20120105
  Transmission Date: 20120608
  Serious: No
  Sender: FDA-Public Use
  Company Number: US-PFIZER INC-2012004019

PATIENT
  Sex: Female
  Weight: 97.506 kg

DRUGS (9)
  1. PROVENTIL TABLET [Concomitant]
     Indication: EMPHYSEMA
     Dosage: UNK
  2. HIPREX [Concomitant]
     Indication: BLADDER DISORDER
     Dosage: UNK
  3. CHANTIX [Suspect]
     Dosage: UNK
     Route: 048
  4. SPIRIVA [Concomitant]
     Indication: EMPHYSEMA
     Dosage: UNK
  5. XANAX [Concomitant]
     Dosage: UNK
  6. ADVAIR DISKUS 100/50 [Concomitant]
     Indication: EMPHYSEMA
     Dosage: UNK
  7. THEOPHYLLINE [Concomitant]
     Indication: EMPHYSEMA
     Dosage: UNK
  8. CHANTIX [Suspect]
     Indication: SMOKING CESSATION THERAPY
     Dosage: 0.5 MG, 1X/DAY
     Route: 048
     Dates: start: 20070101
  9. ARFORMOTEROL TARTRATE [Concomitant]
     Indication: EMPHYSEMA
     Dosage: UNK

REACTIONS (1)
  - NAUSEA [None]
